FAERS Safety Report 8550136-9 (Version None)
Quarter: 2012Q3

REPORT INFORMATION
  Report Type: 
  Country: None (occurrence: None)
  Receive Date: 20120730
  Receipt Date: 20110627
  Transmission Date: 20120928
  Serious: No
  Sender: FDA-Public Use
  Company Number: US-ALLERGAN-1100387US

PATIENT
  Age: 22 Year
  Sex: Female

DRUGS (1)
  1. LATISSE [Suspect]
     Indication: MADAROSIS
     Dosage: 1 GTT, UNK
     Route: 061
     Dates: start: 20090901, end: 20110620

REACTIONS (3)
  - MADAROSIS [None]
  - INAPPROPRIATE SCHEDULE OF DRUG ADMINISTRATION [None]
  - WRONG TECHNIQUE IN DRUG USAGE PROCESS [None]
